FAERS Safety Report 4356398-6 (Version None)
Quarter: 2004Q2

REPORT INFORMATION
  Report Type: 
  Country: None (occurrence: None)
  Receive Date: 20040511
  Receipt Date: 20040511
  Transmission Date: 20050107
  Serious: Yes (Hospitalization)
  Sender: FDA-Public Use
  Company Number: None

PATIENT
  Age: 40 Year
  Sex: Male
  Weight: 90.7194 kg

DRUGS (2)
  1. LIPITOR [Suspect]
     Indication: BLOOD CHOLESTEROL INCREASED
     Dosage: 1 DAY ORAL
     Route: 048
     Dates: start: 20001025, end: 20030110
  2. LIPITOR [Suspect]
     Indication: CARDIAC DISORDER
     Dosage: 1 DAY ORAL
     Route: 048
     Dates: start: 20001025, end: 20030110

REACTIONS (2)
  - FATIGUE [None]
  - MYALGIA [None]
